FAERS Safety Report 4362377-5 (Version None)
Quarter: 2004Q2

REPORT INFORMATION
  Report Type: 
  Country: None (occurrence: None)
  Receive Date: 20040518
  Receipt Date: 20040513
  Transmission Date: 20050107
  Serious: No
  Sender: FDA-Public Use
  Company Number: 138733USA

PATIENT
  Age: 28 Year
  Sex: Female

DRUGS (1)
  1. COPAXONE [Suspect]
     Indication: MULTIPLE SCLEROSIS
     Dates: start: 20040330, end: 20040401

REACTIONS (7)
  - ANAPHYLACTIC SHOCK [None]
  - CHEST PAIN [None]
  - DIZZINESS [None]
  - ERYTHEMA [None]
  - NAUSEA [None]
  - RESPIRATORY ARREST [None]
  - VOMITING [None]
